FAERS Safety Report 14755433 (Version 2)
Quarter: 2018Q2

REPORT INFORMATION
  Report Type: Report from Study
  Country: CN (occurrence: CN)
  Receive Date: 20180413
  Receipt Date: 20180614
  Transmission Date: 20180711
  Serious: Yes (Life-Threatening, Hospitalization)
  Sender: FDA-Public Use
  Company Number: CN-ROCHE-2105626

PATIENT
  Age: 62 Year
  Sex: Male
  Weight: 68 kg

DRUGS (5)
  1. GOSERELIN ACETATE [Concomitant]
     Active Substance: GOSERELIN ACETATE
     Route: 030
     Dates: start: 20160331
  2. ZOLEDRONIC ACID [Concomitant]
     Active Substance: ZOLEDRONIC ACID
     Route: 042
     Dates: start: 20160526
  3. ENZALUTAMIDE [Suspect]
     Active Substance: ENZALUTAMIDE
     Indication: HORMONE-REFRACTORY PROSTATE CANCER
     Dosage: MOST RECENT DOSE PRIOT TO SAE: 21/MAR/2018: 160 MG
     Route: 048
     Dates: start: 20180226
  4. ATEZOLIZUMAB. [Suspect]
     Active Substance: ATEZOLIZUMAB
     Indication: HORMONE-REFRACTORY PROSTATE CANCER
     Dosage: MOST RECENT DOSE PRIOR TO SAE: 20/MAR/2018: 1200 MG
     Route: 042
     Dates: start: 20180226
  5. BICALUTAMIDE. [Concomitant]
     Active Substance: BICALUTAMIDE
     Route: 048
     Dates: start: 20160526

REACTIONS (1)
  - Cerebral infarction [Not Recovered/Not Resolved]

NARRATIVE: CASE EVENT DATE: 20180322
